FAERS Safety Report 8440677-7 (Version None)
Quarter: 2012Q2

REPORT INFORMATION
  Report Type: 
  Country: None (occurrence: None)
  Receive Date: 20120615
  Receipt Date: 20120606
  Transmission Date: 20120825
  Serious: Yes (Hospitalization, Other)
  Sender: FDA-Public Use
  Company Number: US-BAYER-2012-056090

PATIENT
  Age: 29 Year
  Sex: Female
  Weight: 58.05 kg

DRUGS (11)
  1. YASMIN [Suspect]
     Dosage: UNK
     Dates: start: 20070711, end: 20100203
  2. IBUPROFEN [Concomitant]
     Indication: PAIN
     Dosage: UNK UNK, PRN
  3. LEXAPRO [Concomitant]
     Indication: DEPRESSION
     Dosage: UNK
     Dates: start: 20030101
  4. SERTRALINE HYDROCHLORIDE [Concomitant]
     Indication: DEPRESSION
  5. YASMIN [Suspect]
     Indication: CONTRACEPTION
     Dosage: UNK
     Dates: start: 20050510, end: 20060404
  6. TRAZODONE HCL [Concomitant]
     Indication: DEPRESSION
     Dosage: 25 MG, HS
     Dates: start: 20100203
  7. LEXAPRO [Concomitant]
     Indication: ANXIETY
  8. SERTRALINE HYDROCHLORIDE [Concomitant]
     Indication: ANXIETY
     Dosage: UNK, 1 PILL DAILY
     Dates: start: 20060101
  9. TRAZODONE HCL [Concomitant]
     Dosage: UNK
     Dates: start: 20100113
  10. ZOLOFT [Concomitant]
     Dosage: 100 MG, UNK, DAILY
  11. YAZ [Suspect]
     Indication: CONTRACEPTION
     Dosage: UNK
     Dates: start: 20070212, end: 20070711

REACTIONS (7)
  - PULMONARY EMBOLISM [None]
  - THROMBOSIS [None]
  - PAIN IN EXTREMITY [None]
  - FLANK PAIN [None]
  - INJURY [None]
  - PAIN [None]
  - CHEST PAIN [None]
